FAERS Safety Report 7754470-1 (Version None)
Quarter: 2011Q3

REPORT INFORMATION
  Report Type: 
  Country: None (occurrence: None)
  Receive Date: 20110915
  Receipt Date: 20110914
  Transmission Date: 20111222
  Serious: Yes (Death, Hospitalization)
  Sender: FDA-Public Use
  Company Number: JP-B.I. PHARMACEUTICALS,INC./RIDGEFIELD-2011-BP-20289NB

PATIENT
  Sex: Male

DRUGS (10)
  1. CEROCRAL [Concomitant]
     Indication: CEREBRAL INFARCTION
     Dosage: 60 MG
     Route: 048
     Dates: start: 20030101
  2. TICLOPIDINE HCL [Suspect]
     Indication: CEREBRAL INFARCTION
     Dosage: 200 MG
     Route: 048
     Dates: start: 20030101
  3. TANATRIL [Concomitant]
     Indication: DYSPHAGIA
     Dosage: 5 MG
     Route: 048
     Dates: start: 20100119
  4. PRAVASTATIN SODIUM [Concomitant]
     Indication: HYPERLIPIDAEMIA
     Dosage: 10 MG
     Route: 048
     Dates: start: 19940201
  5. PRADAXA [Suspect]
     Indication: ATRIAL FIBRILLATION
     Dosage: 300 MG
     Route: 048
     Dates: start: 20110329
  6. ASPIRIN [Suspect]
     Indication: ANGINA PECTORIS
     Dosage: 100 MG
     Route: 048
     Dates: start: 19940201
  7. CARVEDILOL [Concomitant]
     Indication: CARDIAC FAILURE
     Dosage: 5 MG
     Route: 048
     Dates: start: 20091029
  8. SIGMART [Concomitant]
     Indication: ANGINA PECTORIS
     Dosage: 15 MG
     Route: 048
     Dates: start: 19940201
  9. CONIEL [Concomitant]
     Indication: HYPERTENSION
     Dosage: 4 MG
     Route: 048
     Dates: start: 20091205
  10. ISOSORBIDE MONONITRATE [Concomitant]
     Indication: ANGINA PECTORIS
     Dosage: 40 MG
     Route: 048
     Dates: start: 19940201

REACTIONS (2)
  - ANEURYSM RUPTURED [None]
  - SUBARACHNOID HAEMORRHAGE [None]
